FAERS Safety Report 26007919 (Version 1)
Quarter: 2025Q4

REPORT INFORMATION
  Report Type: Spontaneous
  Country: CN (occurrence: CN)
  Receive Date: 20251106
  Receipt Date: 20251106
  Transmission Date: 20260118
  Serious: Yes (Hospitalization, Disabling, Other)
  Sender: MERCK SHARP & DOHME LLC
  Company Number: CN-009507513-2320879

PATIENT
  Age: 69 Year
  Sex: Male
  Weight: 73 kg

DRUGS (6)
  1. PEMBROLIZUMAB [Suspect]
     Active Substance: PEMBROLIZUMAB
     Indication: Neoplasm malignant
     Dosage: 200MG, FREQ: ONCE EVERY 3 WEEKS
     Dates: start: 20231031
  2. PEMBROLIZUMAB [Suspect]
     Active Substance: PEMBROLIZUMAB
     Indication: Neoplasm malignant
     Dosage: 200MG, FREQ: ONCE EVERY 3 WEEKS
     Dates: start: 20240412, end: 2024
  3. PEMBROLIZUMAB [Suspect]
     Active Substance: PEMBROLIZUMAB
     Indication: Neoplasm malignant
     Dosage: 200MG, ONCE EVERY 21 DAYS (EVERY 3 TO 4 WEEKS)
     Route: 041
     Dates: start: 20240904, end: 20250611
  4. PEMBROLIZUMAB [Suspect]
     Active Substance: PEMBROLIZUMAB
     Indication: Neoplasm malignant
     Dosage: TIME INTERVAL: CYCLICAL: REPORTED AS EVERY 3 WEEKS TO 4 WEEKS
     Route: 041
     Dates: start: 20240904, end: 20251010
  5. PACLITAXEL [Suspect]
     Active Substance: PACLITAXEL
     Indication: Neoplasm malignant
     Route: 065
  6. CARBOPLATIN [Suspect]
     Active Substance: CARBOPLATIN
     Indication: Neoplasm malignant
     Route: 065
     Dates: start: 20231031

REACTIONS (6)
  - Skin ulcer [Recovering/Resolving]
  - Herpes virus infection [Unknown]
  - Immune-mediated lung disease [Unknown]
  - Scab [Unknown]
  - Rash [Unknown]
  - Malignant neoplasm progression [Unknown]

NARRATIVE: CASE EVENT DATE: 20240101
